FAERS Safety Report 17954421 (Version 1)
Quarter: 2020Q2

REPORT INFORMATION
  Report Type: Spontaneous
  Country: CL (occurrence: CL)
  Receive Date: 20200629
  Receipt Date: 20200629
  Transmission Date: 20200714
  Serious: Yes (Other)
  Sender: FDA-Public Use
  Company Number: CL-TEVA-2020-CL-1794623

PATIENT
  Sex: Male

DRUGS (1)
  1. SENTIS (PHENTERMINE) [Suspect]
     Active Substance: PHENTERMINE
     Dosage: 37.5 MILLIGRAM DAILY; SINGLE-DOSE
     Route: 065

REACTIONS (8)
  - Nonspecific reaction [Recovered/Resolved]
  - Nausea [Recovered/Resolved]
  - Adverse event [Recovered/Resolved]
  - Tachycardia [Recovered/Resolved]
  - Myocardial infarction [Recovered/Resolved]
  - Headache [Recovered/Resolved]
  - Suspected counterfeit product [Unknown]
  - Product barcode issue [Unknown]
